FAERS Safety Report 8881423 (Version 13)
Quarter: 2014Q2

REPORT INFORMATION
  Report Type: Spontaneous
  Country: CA (occurrence: CA)
  Receive Date: 20121101
  Receipt Date: 20140610
  Transmission Date: 20141212
  Serious: Yes (Other)
  Sender: FDA-Public Use
  Company Number: CA-ROCHE-1151087

PATIENT
  Sex: Male

DRUGS (13)
  1. XOLAIR [Suspect]
     Indication: ASTHMA
     Route: 058
     Dates: start: 20120730
  2. XOLAIR [Suspect]
     Route: 058
     Dates: start: 20130509
  3. XOLAIR [Suspect]
     Route: 058
     Dates: start: 20130828
  4. XOLAIR [Suspect]
     Route: 058
     Dates: start: 20131007
  5. XOLAIR [Suspect]
     Route: 058
     Dates: start: 20131021
  6. XOLAIR [Suspect]
     Route: 058
     Dates: start: 20131118
  7. XOLAIR [Suspect]
     Route: 058
     Dates: start: 20131104
  8. XOLAIR [Suspect]
     Route: 058
     Dates: start: 20131216
  9. XOLAIR [Suspect]
     Route: 058
     Dates: start: 20131230
  10. XOLAIR [Suspect]
     Route: 058
     Dates: start: 20140407
  11. ADVAIR [Concomitant]
  12. UNIPHYL [Concomitant]
  13. PREDNISONE [Concomitant]

REACTIONS (3)
  - Pneumonia [Recovered/Resolved]
  - Respiratory disorder [Unknown]
  - Body temperature decreased [Not Recovered/Not Resolved]
